FAERS Safety Report 4780037-3 (Version None)
Quarter: 2005Q3

REPORT INFORMATION
  Report Type: 
  Country: None (occurrence: None)
  Receive Date: 20050914
  Receipt Date: 20040806
  Transmission Date: 20060218
  Serious: Yes (Death, Hospitalization, Other)
  Sender: FDA-Public Use
  Company Number: 163-20785-04070005

PATIENT
  Age: 68 Year
  Sex: Male
  Weight: 84.369 kg

DRUGS (7)
  1. THALOMID [Suspect]
     Indication: ACUTE MYELOID LEUKAEMIA
     Dosage: 200 MG, QD, ORAL; 100 MG, QD, ORAL
     Route: 048
     Dates: start: 20040528, end: 20040603
  2. THALOMID [Suspect]
     Indication: ACUTE MYELOID LEUKAEMIA
     Dosage: 200 MG, QD, ORAL; 100 MG, QD, ORAL
     Route: 048
     Dates: start: 20040604, end: 20040621
  3. TOPOTECAN (TOPOTECAN) (UNKNOWN) [Suspect]
     Indication: ACUTE MYELOID LEUKAEMIA
     Dosage: 1.6 MG, QD X3 DAYS, INTRAVENOUS
     Route: 042
     Dates: start: 20040602, end: 20040604
  4. FLUDARABINE [Suspect]
     Indication: ACUTE MYELOID LEUKAEMIA
     Dosage: 28 MG, QD X5 DAYS, INTRAVENOUS
     Route: 042
     Dates: start: 20040528, end: 20040601
  5. FLUDARABINE [Suspect]
     Indication: ACUTE MYELOID LEUKAEMIA
     Dosage: 28 MG, QD X5 DAYS, INTRAVENOUS
     Route: 042
     Dates: start: 20040617, end: 20040621
  6. CARBOPLATIN [Suspect]
     Indication: ACUTE MYELOID LEUKAEMIA
     Dosage: 190 MG, QD X 6 DAYS, INTRAVENOUS; 182 MG, QD X 5 DAYS, INTRAVENOUS
     Route: 042
     Dates: start: 20040528, end: 20040602
  7. CARBOPLATIN [Suspect]
     Indication: ACUTE MYELOID LEUKAEMIA
     Dosage: 190 MG, QD X 6 DAYS, INTRAVENOUS; 182 MG, QD X 5 DAYS, INTRAVENOUS
     Route: 042
     Dates: start: 20040617, end: 20040621

REACTIONS (15)
  - ALANINE AMINOTRANSFERASE INCREASED [None]
  - ASPARTATE AMINOTRANSFERASE INCREASED [None]
  - BLOOD ALKALINE PHOSPHATASE INCREASED [None]
  - BLOOD BILIRUBIN INCREASED [None]
  - BLOOD CREATININE INCREASED [None]
  - CONFUSIONAL STATE [None]
  - DEATH [None]
  - DEPRESSED LEVEL OF CONSCIOUSNESS [None]
  - GAMMA-GLUTAMYLTRANSFERASE INCREASED [None]
  - HEPATIC FAILURE [None]
  - LIVER FUNCTION TEST ABNORMAL [None]
  - MENTAL STATUS CHANGES [None]
  - NEUTROPHIL COUNT DECREASED [None]
  - PLATELET COUNT DECREASED [None]
  - SOMNOLENCE [None]
